FAERS Safety Report 13720423 (Version 1)
Quarter: 2017Q3

REPORT INFORMATION
  Report Type: Spontaneous
  Country: CA (occurrence: CA)
  Receive Date: 20170706
  Receipt Date: 20170706
  Transmission Date: 20171127
  Serious: Yes (Disabling)
  Sender: FDA-Public Use
  Company Number: CA-ROCHE-1959918

PATIENT
  Age: 81 Year
  Sex: Male

DRUGS (3)
  1. LUCENTIS [Suspect]
     Active Substance: RANIBIZUMAB
     Indication: RETINAL ARTERY OCCLUSION
     Dosage: UNK, ONCE/SINGLE
     Route: 031
  2. LUCENTIS [Suspect]
     Active Substance: RANIBIZUMAB
     Indication: BACTERIAL INFECTION
  3. LUCENTIS [Suspect]
     Active Substance: RANIBIZUMAB
     Indication: CEREBROVASCULAR ACCIDENT

REACTIONS (1)
  - Blindness [Not Recovered/Not Resolved]
